FAERS Safety Report 4336373-8 (Version None)
Quarter: 2004Q2

REPORT INFORMATION
  Report Type: 
  Country: None (occurrence: None)
  Receive Date: 20040409
  Receipt Date: 20040409
  Transmission Date: 20050107
  Serious: Yes (Other)
  Sender: FDA-Public Use
  Company Number: None

PATIENT
  Age: 70 Year
  Sex: Male
  Weight: 101 kg

DRUGS (3)
  1. ERBITUX 800 GMS [Suspect]
     Indication: COLON CANCER
     Dosage: 800 GMS
     Dates: start: 20040323
  2. ERBITUX 800 GMS [Suspect]
     Indication: METASTASES TO LIVER
     Dosage: 800 GMS
     Dates: start: 20040323
  3. LOPRATOR [Concomitant]

REACTIONS (8)
  - BLOOD PRESSURE DECREASED [None]
  - COLD SWEAT [None]
  - DIZZINESS [None]
  - NAUSEA [None]
  - RASH ERYTHEMATOUS [None]
  - RASH PRURITIC [None]
  - SKIN DISORDER [None]
  - SKIN WARM [None]
